FAERS Safety Report 9043326 (Version 1)
Quarter: 2013Q1

REPORT INFORMATION
  Report Type: Report from Study
  Country: US (occurrence: US)
  Receive Date: 20130129
  Receipt Date: 20130129
  Transmission Date: 20140127
  Serious: No
  Sender: FDA-Public Use
  Company Number: US-ABBOTT-12P-163-0914504-00

PATIENT
  Age: 48 Year
  Sex: Female

DRUGS (10)
  1. HUMIRA 40 MG/0.8 ML PEN [Suspect]
     Indication: ANKYLOSING SPONDYLITIS
     Dates: start: 20120229
  2. YAZ [Concomitant]
     Indication: CONTRACEPTION
  3. MOBIC [Concomitant]
     Indication: PRODUCT USED FOR UNKNOWN INDICATION
     Dosage: DAILY
  4. PRILOSEC [Concomitant]
     Indication: PROPHYLAXIS
     Dosage: DAILY; PREVENTATIVE FOR TAKING MOBIC
  5. ZANAFLEX [Concomitant]
     Indication: PRODUCT USED FOR UNKNOWN INDICATION
     Dosage: DAILY
  6. LAMICTAL [Concomitant]
     Indication: PRODUCT USED FOR UNKNOWN INDICATION
     Dosage: DAILY
  7. PRISTIQ [Concomitant]
     Indication: PAIN
  8. PRISTIQ [Concomitant]
     Indication: DEPRESSION
  9. FENTANYL [Concomitant]
     Indication: PRODUCT USED FOR UNKNOWN INDICATION
     Dosage: PATCH EVERY 3 DAYS
  10. HYDROCODONE [Concomitant]
     Indication: PAIN

REACTIONS (3)
  - Energy increased [Not Recovered/Not Resolved]
  - Injection site pain [Unknown]
  - Paraesthesia [Unknown]
